FAERS Safety Report 17805684 (Version 1)
Quarter: 2020Q2

REPORT INFORMATION
  Report Type: Report from Study
  Country: US (occurrence: US)
  Receive Date: 20200519
  Receipt Date: 20200519
  Transmission Date: 20200714
  Serious: Yes (Other)
  Sender: FDA-Public Use
  Company Number: US-ROCHE-2602071

PATIENT
  Age: 52 Year
  Sex: Female
  Weight: 90.8 kg

DRUGS (1)
  1. OCREVUS [Suspect]
     Active Substance: OCRELIZUMAB
     Indication: RELAPSING-REMITTING MULTIPLE SCLEROSIS
     Dosage: ONGOING:YES
     Route: 065
     Dates: start: 20170929

REACTIONS (11)
  - Rash erythematous [Recovered/Resolved]
  - Oxygen saturation decreased [Unknown]
  - Infection [Recovered/Resolved]
  - Dyspnoea [Unknown]
  - Erythema [Recovered/Resolved]
  - Herpes zoster [Unknown]
  - Folliculitis [Unknown]
  - Nasal ulcer [Recovered/Resolved]
  - Staphylococcal infection [Unknown]
  - Swelling [Recovered/Resolved]
  - Sleep paralysis [Unknown]

NARRATIVE: CASE EVENT DATE: 201912
